FAERS Safety Report 6192999-0 (Version None)
Quarter: 2009Q2

REPORT INFORMATION
  Report Type: 
  Country: None (occurrence: None)
  Receive Date: 20090514
  Receipt Date: 20090429
  Transmission Date: 20091009
  Serious: Yes (Death, Hospitalization)
  Sender: FDA-Public Use
  Company Number: 2008US004248

PATIENT
  Age: 68 Year
  Sex: Male

DRUGS (17)
  1. ALOXI [Suspect]
     Indication: PROPHYLAXIS OF NAUSEA AND VOMITING
     Dosage: 0.25 MG, SINGLE, INTRAVENOUS
     Route: 042
     Dates: start: 20080515, end: 20080515
  2. LASIX [Suspect]
     Indication: OEDEMA PERIPHERAL
     Dosage: ORAL
     Route: 048
     Dates: start: 20080501, end: 20080525
  3. LASIX [Suspect]
     Indication: OEDEMA PERIPHERAL
     Dosage: ORAL
     Route: 048
     Dates: start: 20080602
  4. ALDACTONE [Suspect]
     Dosage: ORAL
     Route: 048
     Dates: start: 20080505
  5. LEUCOVORIN CALCIUM [Suspect]
     Indication: COLORECTAL CANCER METASTATIC
     Dates: start: 20080515
  6. LEUCOVORIN CALCIUM [Suspect]
     Indication: COLORECTAL CANCER METASTATIC
     Dosage: 720 MG
     Dates: start: 20080515
  7. OXALIPLATIN [Suspect]
     Indication: COLORECTAL CANCER METASTATIC
     Dosage: 150 MG, INTRAVENOUS
     Route: 042
     Dates: start: 20080515
  8. AG-013 736(AG-013 736)  (AXIT [Suspect]
     Indication: COLORECTAL CANCER METASTATIC
     Dosage: 5 MG, Q12H, ORAL
     Route: 048
     Dates: start: 20080515
  9. FLUOROURACIL [Suspect]
     Indication: COLORECTAL CANCER METASTATIC
     Dosage: 720 MG, QD, IV BOLUS; 4300 MG, SINGLE, IV DRIP
     Route: 040
     Dates: start: 20080515, end: 20080515
  10. FLUOROURACIL [Suspect]
     Indication: COLORECTAL CANCER METASTATIC
     Dosage: 720 MG, QD, IV BOLUS; 4300 MG, SINGLE, IV DRIP
     Route: 040
     Dates: start: 20080515, end: 20080517
  11. AVASTIN [Suspect]
     Indication: COLORECTAL CANCER METASTATIC
     Dosage: 137 MG, Q2WK, INTRAVENOUS
     Route: 042
     Dates: start: 20080515
  12. NORCO [Suspect]
     Indication: ABDOMINAL PAIN
     Dosage: ORAL
     Route: 048
     Dates: start: 20080505, end: 20080525
  13. DEXAMETHASONE [Concomitant]
  14. LACTATED RINGER'S (CALCIUM CHLORIDE DIHYDRATE, POTASSIUM CHLORIDE, SOD [Concomitant]
  15. KYTRIL [Concomitant]
  16. PHENERGAN /00033002/ (PROMETHAZINE HYDROCHLORIDE) [Concomitant]
  17. LEVOTHYROXINE                   /00068002/ (LEVOTHYROXINE SODIUM) [Concomitant]

REACTIONS (10)
  - ABDOMINAL PAIN [None]
  - ASTHENIA [None]
  - BLOOD UREA INCREASED [None]
  - CEREBROVASCULAR ACCIDENT [None]
  - CONSTIPATION [None]
  - DEHYDRATION [None]
  - HYPOPHAGIA [None]
  - MALNUTRITION [None]
  - OEDEMA PERIPHERAL [None]
  - SCROTAL OEDEMA [None]
